FAERS Safety Report 13670306 (Version 1)
Quarter: 2017Q2

REPORT INFORMATION
  Report Type: Spontaneous
  Country: FR (occurrence: FR)
  Receive Date: 20170620
  Receipt Date: 20170620
  Transmission Date: 20170830
  Serious: Yes (Hospitalization, Other)
  Sender: FDA-Public Use
  Company Number: FR-GILEAD-2017-0278209

PATIENT
  Age: 52 Year
  Sex: Male

DRUGS (12)
  1. ENOXAPARINE SODIQUE [Concomitant]
     Active Substance: ENOXAPARIN SODIUM
  2. NEFOPAM [Concomitant]
     Active Substance: NEFOPAM
  3. RIBAVIRINE [Suspect]
     Active Substance: RIBAVIRIN
     Indication: HEPATITIS C
     Dosage: 600 MG, BID
     Route: 048
     Dates: start: 201702
  4. ALDACTONE [Concomitant]
     Active Substance: SPIRONOLACTONE
  5. DIFFU K [Concomitant]
     Active Substance: POTASSIUM CHLORIDE
  6. PANTOPRAZOLE [Concomitant]
     Active Substance: PANTOPRAZOLE
  7. LACTULOSE. [Concomitant]
     Active Substance: LACTULOSE
  8. DAKLINZA [Suspect]
     Active Substance: DACLATASVIR
     Indication: HEPATITIS C
     Dosage: 60 MG, QD
     Route: 048
     Dates: start: 201702
  9. VIALEBEX [Concomitant]
     Active Substance: ALBUMIN HUMAN
  10. SOVALDI [Suspect]
     Active Substance: SOFOSBUVIR
     Indication: HEPATITIS C
     Dosage: 400 MG, QD
     Route: 048
     Dates: start: 201702
  11. FUROSEMIDE. [Concomitant]
     Active Substance: FUROSEMIDE
  12. PARACETAMOL [Concomitant]
     Active Substance: ACETAMINOPHEN

REACTIONS (2)
  - Systemic inflammatory response syndrome [Not Recovered/Not Resolved]
  - Hyperthermia [Not Recovered/Not Resolved]

NARRATIVE: CASE EVENT DATE: 20170322
